FAERS Safety Report 8748279 (Version 2)
Quarter: 2012Q4

REPORT INFORMATION
  Report Type: Report from Study
  Country: US (occurrence: US)
  Receive Date: 20120827
  Receipt Date: 20120831
  Transmission Date: 20130627
  Serious: Yes (Other)
  Sender: FDA-Public Use
  Company Number: US-JNJFOC-20120812792

PATIENT
  Age: 15 Year
  Sex: Female
  Weight: 44.4 kg

DRUGS (13)
  1. REMICADE [Suspect]
     Indication: CROHN^S DISEASE
     Route: 042
  2. REMICADE [Suspect]
     Indication: CROHN^S DISEASE
     Route: 042
     Dates: start: 20120720
  3. REMICADE [Suspect]
     Indication: CROHN^S DISEASE
     Route: 042
     Dates: start: 20120606
  4. ANTIBIOTICS [Concomitant]
  5. BENADRYL [Concomitant]
  6. NEURONTIN [Concomitant]
  7. FENTANYL [Concomitant]
  8. DILAUDID [Concomitant]
  9. BIOTIN [Concomitant]
  10. VITAMIN D [Concomitant]
  11. FLONASE [Concomitant]
  12. VANCOMYCIN [Concomitant]
  13. METHOTREXATE [Concomitant]

REACTIONS (1)
  - Cellulitis [Recovered/Resolved]
